FAERS Safety Report 5256145-X (Version None)
Quarter: 2007Q1

REPORT INFORMATION
  Report Type: 
  Country: None (occurrence: None)
  Receive Date: 20061220
  Receipt Date: 20061107
  Transmission Date: 20070707
  Serious: Yes (Other)
  Sender: FDA-Public Use
  Company Number: 2006RL000406

PATIENT
  Age: 60 Year
  Sex: Male

DRUGS (5)
  1. OMACOR [Suspect]
     Indication: BLOOD CHOLESTEROL INCREASED
     Dosage: 3 DF;QD;PO
     Route: 048
     Dates: start: 20050701, end: 20061001
  2. ATENOLOL [Concomitant]
  3. ACETYLSALICYLIC ACID SRT [Concomitant]
  4. PLENDIL [Concomitant]
  5. BIMATOPROST [Concomitant]

REACTIONS (1)
  - RASH [None]
